FAERS Safety Report 16452486 (Version 1)
Quarter: 2019Q2

REPORT INFORMATION
  Report Type: Spontaneous
  Country: CA (occurrence: CA)
  Receive Date: 20190619
  Receipt Date: 20190619
  Transmission Date: 20190711
  Serious: Yes (Death, Other)
  Sender: FDA-Public Use
  Company Number: CA-TEVA-2019-CA-1064884

PATIENT
  Age: 24 Year
  Sex: Male

DRUGS (8)
  1. SODIUM CHLORIDE. [Suspect]
     Active Substance: SODIUM CHLORIDE
     Indication: ABDOMINAL PAIN
     Route: 065
  2. SODIUM CHLORIDE 0.9% INJECTION [Suspect]
     Active Substance: SODIUM CHLORIDE
     Indication: HAEMATEMESIS
     Route: 042
  3. PANTOPRAZOLE [Suspect]
     Active Substance: PANTOPRAZOLE
     Indication: ABDOMINAL PAIN
     Route: 065
  4. PANTOPRAZOLE FOR INJECTION LYOPHILIZED POWDER [Suspect]
     Active Substance: PANTOPRAZOLE
     Indication: ABDOMINAL PAIN
  5. SODIUM CHLORIDE. [Suspect]
     Active Substance: SODIUM CHLORIDE
     Indication: HAEMATEMESIS
     Route: 042
  6. PANTOPRAZOLE FOR INJECTION LYOPHILIZED POWDER [Suspect]
     Active Substance: PANTOPRAZOLE
     Indication: HAEMATEMESIS
     Route: 042
  7. PANTOPRAZOLE [Suspect]
     Active Substance: PANTOPRAZOLE
     Indication: HAEMATEMESIS
     Route: 042
  8. SODIUM CHLORIDE 0.9% INJECTION [Suspect]
     Active Substance: SODIUM CHLORIDE
     Indication: ABDOMINAL PAIN

REACTIONS (5)
  - Cardio-respiratory arrest [Fatal]
  - Dyspnoea [Fatal]
  - Endotracheal intubation [Fatal]
  - Oxygen saturation decreased [Fatal]
  - Respiratory failure [Fatal]
